FAERS Safety Report 20053340 (Version 1)
Quarter: 2021Q4

REPORT INFORMATION
  Report Type: Spontaneous
  Country: US (occurrence: None)
  Receive Date: 20211109
  Receipt Date: 20211109
  Transmission Date: 20220303
  Serious: Yes (Other)
  Sender: FDA-Public Use
  Company Number: None

PATIENT
  Sex: Male

DRUGS (1)
  1. NAFTIN [Suspect]
     Active Substance: NAFTIFINE HYDROCHLORIDE
     Dosage: FREQUENCY : TWICE A DAY;?
     Route: 061

REACTIONS (5)
  - Pruritus [None]
  - Skin erosion [None]
  - Wound haemorrhage [None]
  - Skin exfoliation [None]
  - Scab [None]
